FAERS Safety Report 11021240 (Version 5)
Quarter: 2016Q3

REPORT INFORMATION
  Report Type: Spontaneous
  Country: US (occurrence: US)
  Receive Date: 20150413
  Receipt Date: 20160708
  Transmission Date: 20161109
  Serious: Yes (Other)
  Sender: FDA-Public Use
  Company Number: US-009507513-1504USA005235

PATIENT
  Sex: Male
  Weight: 99.32 kg

DRUGS (5)
  1. LEXAPRO [Suspect]
     Active Substance: ESCITALOPRAM OXALATE
     Dosage: 20 MG, QD
     Route: 048
     Dates: start: 20031124
  2. WELLBUTRIN [Suspect]
     Active Substance: BUPROPION HYDROCHLORIDE
     Indication: DEPRESSION
     Dosage: UNK, UNKNOWN
     Route: 065
  3. METOPROLOL. [Suspect]
     Active Substance: METOPROLOL
     Indication: PRODUCT USED FOR UNKNOWN INDICATION
     Dosage: UNK, UNKNOWN
     Route: 065
     Dates: end: 20091008
  4. PROPECIA [Suspect]
     Active Substance: FINASTERIDE
     Indication: ALOPECIA
     Dosage: 1 MG, QD
     Route: 048
     Dates: start: 2000, end: 201109
  5. LEXAPRO [Suspect]
     Active Substance: ESCITALOPRAM OXALATE
     Indication: DEPRESSION
     Dosage: 10 MG, QD
     Route: 048

REACTIONS (48)
  - Psychosexual disorder [Not Recovered/Not Resolved]
  - Ventricular extrasystoles [Unknown]
  - Fall [Recovered/Resolved]
  - Depression [Recovering/Resolving]
  - Cardiac arrest [Recovering/Resolving]
  - Plantar fasciitis [Not Recovered/Not Resolved]
  - Osteoarthritis [Not Recovered/Not Resolved]
  - Attention deficit/hyperactivity disorder [Unknown]
  - Neck pain [Not Recovered/Not Resolved]
  - Hypersensitivity [Unknown]
  - Anxiety [Recovering/Resolving]
  - Viral myocarditis [Unknown]
  - Cough [Unknown]
  - Tendonitis [Not Recovered/Not Resolved]
  - Orgasm abnormal [Unknown]
  - Weight increased [Unknown]
  - Gastrooesophageal reflux disease [Unknown]
  - Ligament rupture [Recovering/Resolving]
  - Blood testosterone decreased [Unknown]
  - Lipids increased [Not Recovered/Not Resolved]
  - Arthralgia [Unknown]
  - Dysphonia [Unknown]
  - Asthenia [Recovering/Resolving]
  - Depressed level of consciousness [Unknown]
  - Ventricular fibrillation [Unknown]
  - Sperm concentration decreased [Unknown]
  - Hypogonadism male [Unknown]
  - Colon adenoma [Unknown]
  - Rib fracture [Recovered/Resolved]
  - Fatigue [Unknown]
  - Back pain [Not Recovered/Not Resolved]
  - Musculoskeletal chest pain [Unknown]
  - Malaise [Recovering/Resolving]
  - Cough [Unknown]
  - Pollakiuria [Unknown]
  - Erectile dysfunction [Not Recovered/Not Resolved]
  - Stress at work [Unknown]
  - Meningioma [Unknown]
  - Fall [Unknown]
  - Fatigue [Recovering/Resolving]
  - Dizziness [Recovering/Resolving]
  - Libido decreased [Recovering/Resolving]
  - Joint dislocation [Recovering/Resolving]
  - Skin abrasion [Recovering/Resolving]
  - Rotator cuff syndrome [Unknown]
  - Meniscus injury [Unknown]
  - Nocturia [Not Recovered/Not Resolved]
  - Hypotension [Recovering/Resolving]

NARRATIVE: CASE EVENT DATE: 2000
